FAERS Safety Report 5948292-1 (Version None)
Quarter: 2008Q4

REPORT INFORMATION
  Report Type: 
  Country: None (occurrence: None)
  Receive Date: 20081111
  Receipt Date: 20081028
  Transmission Date: 20090506
  Serious: Yes (Life-Threatening, Hospitalization, Other)
  Sender: FDA-Public Use
  Company Number: GB-SOLVAY-00307035238

PATIENT
  Age: 104 Day
  Sex: Female

DRUGS (5)
  1. FLOXACILLIN SODIUM [Concomitant]
     Indication: PROPHYLAXIS
     Dosage: DAILY DOSE: 250 MILLIGRAM(S)
     Route: 048
  2. CREON [Suspect]
     Indication: PANCREATIC INSUFFICIENCY
     Dosage: DAILY DOSE:  UNKNOWN; FREQUENCY: AS NEEDED, DOSAGE: MDU
     Route: 048
  3. VITAMIN E [Concomitant]
     Indication: MALNUTRITION
     Dosage: DAILY DOSE: 50 MILLIGRAM(S)
     Route: 048
  4. VITAMIN K TAB [Concomitant]
     Indication: MALNUTRITION
     Dosage: DAILY DOSE: 10 MILLIGRAM(S)
     Route: 048
  5. DALAVIT [Concomitant]
     Indication: MALNUTRITION
     Dosage: DAILY DOSE: .6 MILLILITRE(S)
     Route: 048

REACTIONS (1)
  - DISTAL INTESTINAL OBSTRUCTION SYNDROME [None]
